FAERS Safety Report 9597104 (Version 1)
Quarter: 2013Q4

REPORT INFORMATION
  Report Type: Spontaneous
  Country: FR (occurrence: FR)
  Receive Date: 20131004
  Receipt Date: 20131004
  Transmission Date: 20140711
  Serious: Yes (Hospitalization)
  Sender: FDA-Public Use
  Company Number: FR-WATSON-2013-17630

PATIENT
  Age: 58 Year
  Sex: Female

DRUGS (2)
  1. CARBOPLATINE ACTAVIS [Suspect]
     Indication: LUNG ADENOCARCINOMA
     Dosage: 450 MG, DAILY
     Route: 042
     Dates: start: 20130626, end: 20130626
  2. TAXOTERE [Suspect]
     Indication: LUNG NEOPLASM MALIGNANT
     Dosage: UNK
     Route: 065
     Dates: start: 20130626, end: 20130626

REACTIONS (3)
  - Rash [Recovered/Resolved]
  - Diarrhoea [Recovered/Resolved]
  - Hypothermia [Recovered/Resolved]
